FAERS Safety Report 7335391-5 (Version None)
Quarter: 2011Q1

REPORT INFORMATION
  Report Type: 
  Country: None (occurrence: None)
  Receive Date: 20110302
  Receipt Date: 20110302
  Transmission Date: 20110831
  Serious: No
  Sender: FDA-Public Use
  Company Number: None

PATIENT
  Sex: Female
  Weight: 48.0813 kg

DRUGS (2)
  1. ALENDRONATE [Suspect]
     Indication: OSTEOPOROSIS
     Dosage: 70MG 1 TAB/WEEK
     Dates: start: 20110211
  2. ALENDRONATE [Suspect]
     Indication: OSTEOPOROSIS
     Dosage: 70MG 1 TAB/WEEK
     Dates: start: 20110204

REACTIONS (3)
  - MYALGIA [None]
  - BONE PAIN [None]
  - ACTIVITIES OF DAILY LIVING IMPAIRED [None]
